FAERS Safety Report 16989696 (Version 1)
Quarter: 2019Q4

REPORT INFORMATION
  Report Type: Spontaneous
  Country: CA (occurrence: CA)
  Receive Date: 20191104
  Receipt Date: 20191104
  Transmission Date: 20200122
  Serious: Yes (Life-Threatening, Other)
  Sender: FDA-Public Use
  Company Number: CA-PFIZER INC-2019472750

PATIENT
  Age: 52 Year
  Sex: Female
  Weight: 72.56 kg

DRUGS (2)
  1. PMS-GABAPENTIN [Suspect]
     Active Substance: GABAPENTIN
     Indication: NEURALGIA
     Dosage: 300 MG, 3X/DAY
  2. GABAPENTIN. [Suspect]
     Active Substance: GABAPENTIN
     Indication: NEURALGIA
     Dosage: 100 MG, 3X/DAY

REACTIONS (6)
  - Vision blurred [Recovered/Resolved]
  - Suicidal ideation [Recovered/Resolved]
  - Dizziness [Recovered/Resolved]
  - Suicide attempt [Recovered/Resolved]
  - Depressed mood [Recovered/Resolved]
  - Balance disorder [Recovered/Resolved]
